FAERS Safety Report 6402794-2 (Version None)
Quarter: 2009Q4

REPORT INFORMATION
  Report Type: 
  Country: None (occurrence: None)
  Receive Date: 20091016
  Receipt Date: 20070504
  Transmission Date: 20100525
  Serious: Yes (Disabling)
  Sender: FDA-Public Use
  Company Number: US-ASTRAZENECA-2006UW07889

PATIENT
  Sex: Male
  Weight: 101.2 kg

DRUGS (12)
  1. SEROQUEL [Suspect]
     Dosage: 25-100 MG
     Route: 048
     Dates: start: 20010310
  2. MORPHINE SULFATE [Concomitant]
     Dosage: 15MG, 50 MG VARIABLE DOSE
     Route: 048
  3. NEURONTIN [Concomitant]
  4. METFORMIN HYDROCHLORIDE [Concomitant]
     Dosage: 500 MG, 1000 MG (VARIABLE DOSE)
     Route: 048
  5. PREVACID [Concomitant]
  6. HYDROCHLOROTHIAZIDE [Concomitant]
     Route: 048
  7. PANTOPRAZOLE SODIUM [Concomitant]
     Route: 048
  8. LOVASTATIN [Concomitant]
     Route: 048
  9. DEPAKENE [Concomitant]
     Indication: BIPOLAR DISORDER
     Route: 048
  10. METHADONE HYDROCHLORIDE [Concomitant]
     Indication: PAIN
  11. ZESTRIL [Concomitant]
  12. HUMULIN N [Concomitant]
     Dosage: 100 UNIT/ML, 15 UNITS EVERY NIGHT
     Route: 058

REACTIONS (1)
  - ILL-DEFINED DISORDER [None]
